FAERS Safety Report 9491886 (Version 1)
Quarter: 2013Q3

REPORT INFORMATION
  Report Type: Report from Study
  Country: US (occurrence: US)
  Receive Date: 20130830
  Receipt Date: 20130830
  Transmission Date: 20140515
  Serious: No
  Sender: FDA-Public Use
  Company Number: US-VERTEX PHARMACEUTICALS INC-2013-009035

PATIENT
  Age: 28 Year
  Sex: Female

DRUGS (3)
  1. VX-950 (TELAPREVIR) [Suspect]
     Indication: HEPATITIS C
     Dosage: UNK
     Dates: start: 20130603
  2. PEGASYS [Suspect]
     Dosage: UNK
     Dates: start: 20130603
  3. RIBAVIRIN [Suspect]
     Dosage: UNK
     Dates: start: 20130603

REACTIONS (1)
  - Rash [Not Recovered/Not Resolved]
